FAERS Safety Report 17667003 (Version 1)
Quarter: 2020Q2

REPORT INFORMATION
  Report Type: Spontaneous
  Country: US (occurrence: US)
  Receive Date: 20200414
  Receipt Date: 20200414
  Transmission Date: 20200713
  Serious: No
  Sender: FDA-Public Use
  Company Number: US-ASTELLAS-2020US003377

PATIENT
  Age: 8 Year
  Sex: Male

DRUGS (1)
  1. PROGRAF [Suspect]
     Active Substance: TACROLIMUS
     Indication: PRODUCT USED FOR UNKNOWN INDICATION
     Dosage: 1.5 ML (BY G-TUBE), EVERY 12 HOURS
     Dates: start: 20200123

REACTIONS (2)
  - Product storage error [Unknown]
  - Incorrect route of product administration [Unknown]
